FAERS Safety Report 11500222 (Version 32)
Quarter: 2016Q4

REPORT INFORMATION
  Report Type: Report from Study
  Country: CA (occurrence: CA)
  Receive Date: 20150914
  Receipt Date: 20161028
  Transmission Date: 20170206
  Serious: Yes (Other)
  Sender: FDA-Public Use
  Company Number: CA-SA-2015SA125176

PATIENT
  Age: 50 Year
  Sex: Female
  Weight: 46 kg

DRUGS (12)
  1. TOVIAZ [Suspect]
     Active Substance: FESOTERODINE FUMARATE
     Route: 048
  2. DITROPAN [Concomitant]
     Active Substance: OXYBUTYNIN CHLORIDE
     Dosage: 2.5 MG 1 TAB QAM AND 1 TAB QHS
     Route: 048
  3. OXYBUTYNIN [Concomitant]
     Active Substance: OXYBUTYNIN
     Route: 048
  4. RIVOTRIL [Concomitant]
     Active Substance: CLONAZEPAM
     Route: 048
  5. TOVIAZ [Suspect]
     Active Substance: FESOTERODINE FUMARATE
     Route: 048
     Dates: end: 20160115
  6. SOLU-MEDROL [Suspect]
     Active Substance: METHYLPREDNISOLONE SODIUM SUCCINATE
     Indication: PREMEDICATION
     Route: 042
     Dates: start: 20150817, end: 20150821
  7. BACLOFEN. [Concomitant]
     Active Substance: BACLOFEN
     Route: 048
  8. SOLU-MEDROL [Suspect]
     Active Substance: METHYLPREDNISOLONE SODIUM SUCCINATE
     Indication: RELAPSING-REMITTING MULTIPLE SCLEROSIS
     Route: 042
     Dates: start: 20150817, end: 20150821
  9. CANESORAL [Concomitant]
     Indication: FUNGAL INFECTION
     Route: 048
     Dates: start: 20150819, end: 20150821
  10. ZANTAC [Concomitant]
     Active Substance: RANITIDINE HYDROCHLORIDE
     Indication: PREMEDICATION
     Route: 048
     Dates: start: 20150817
  11. LEMTRADA [Suspect]
     Active Substance: ALEMTUZUMAB
     Indication: RELAPSING-REMITTING MULTIPLE SCLEROSIS
     Route: 041
     Dates: start: 20150817, end: 20150821
  12. RESTORIL [Concomitant]
     Active Substance: TEMAZEPAM
     Route: 048

REACTIONS (75)
  - Hypertension [Recovered/Resolved]
  - Vertigo [Not Recovered/Not Resolved]
  - Blood urine present [Not Recovered/Not Resolved]
  - Head discomfort [Not Recovered/Not Resolved]
  - Neutrophil percentage increased [Recovered/Resolved]
  - Mean cell haemoglobin concentration decreased [Recovered/Resolved]
  - Urinary tract infection [Recovering/Resolving]
  - Bacterial test [Recovered/Resolved]
  - Fall [Recovering/Resolving]
  - Escherichia test positive [Recovering/Resolving]
  - Cataract [Not Recovered/Not Resolved]
  - Condition aggravated [Unknown]
  - Eye pain [Not Recovered/Not Resolved]
  - Vaginal discharge [Recovered/Resolved]
  - Haemoglobin decreased [Recovered/Resolved]
  - Chills [Not Recovered/Not Resolved]
  - Pain in extremity [Unknown]
  - Arthralgia [Recovering/Resolving]
  - Muscle spasms [Not Recovered/Not Resolved]
  - Vision blurred [Not Recovered/Not Resolved]
  - Dysphonia [Unknown]
  - Monocyte percentage increased [Recovered/Resolved]
  - Lymphocyte percentage decreased [Recovered/Resolved]
  - Asthenia [Unknown]
  - Muscular weakness [Not Recovered/Not Resolved]
  - Abdominal pain [Not Recovered/Not Resolved]
  - Headache [Not Recovered/Not Resolved]
  - Contusion [Not Recovered/Not Resolved]
  - Hypoaesthesia [Not Recovered/Not Resolved]
  - Oesophageal spasm [Not Recovered/Not Resolved]
  - Renal pain [Recovered/Resolved]
  - Hypersomnia [Unknown]
  - Red cell distribution width increased [Recovered/Resolved]
  - Red blood cells urine positive [Recovered/Resolved]
  - Urinary casts [Unknown]
  - Red blood cell count decreased [Recovered/Resolved]
  - Nausea [Not Recovered/Not Resolved]
  - Liver disorder [Not Recovered/Not Resolved]
  - Ear pain [Not Recovered/Not Resolved]
  - Throat irritation [Not Recovered/Not Resolved]
  - Hypotension [Recovered/Resolved]
  - Urticaria [Not Recovered/Not Resolved]
  - Fatigue [Not Recovered/Not Resolved]
  - Feeling cold [Not Recovered/Not Resolved]
  - Neutropenia [Recovered/Resolved]
  - Urine analysis abnormal [Unknown]
  - Balance disorder [Not Recovered/Not Resolved]
  - Urine leukocyte esterase positive [Not Recovered/Not Resolved]
  - White blood cells urine positive [Recovered/Resolved]
  - Productive cough [Not Recovered/Not Resolved]
  - White blood cell count decreased [Not Recovered/Not Resolved]
  - Lymphocyte count decreased [Recovered/Resolved]
  - Dizziness [Recovering/Resolving]
  - Flushing [Recovered/Resolved]
  - Vaginal infection [Not Recovered/Not Resolved]
  - Eosinophil percentage decreased [Recovered/Resolved]
  - Culture urine positive [Recovering/Resolving]
  - Memory impairment [Not Recovered/Not Resolved]
  - Nystagmus [Not Recovered/Not Resolved]
  - Sunburn [Not Recovered/Not Resolved]
  - Peripheral swelling [Recovered/Resolved]
  - Gait disturbance [Not Recovered/Not Resolved]
  - Skin discolouration [Recovered/Resolved]
  - Urine analysis abnormal [Not Recovered/Not Resolved]
  - Band neutrophil count increased [Recovered/Resolved]
  - Feeling hot [Not Recovered/Not Resolved]
  - Heart rate decreased [Not Recovered/Not Resolved]
  - Bone pain [Recovering/Resolving]
  - Haematocrit decreased [Recovered/Resolved]
  - Band neutrophil percentage increased [Not Recovered/Not Resolved]
  - Nitrite urine present [Recovered/Resolved]
  - Insomnia [Not Recovered/Not Resolved]
  - Pruritus [Not Recovered/Not Resolved]
  - Pyrexia [Not Recovered/Not Resolved]
  - Peripheral coldness [Not Recovered/Not Resolved]

NARRATIVE: CASE EVENT DATE: 2015
